FAERS Safety Report 16118179 (Version 1)
Quarter: 2019Q1

REPORT INFORMATION
  Report Type: Report from Study
  Country: None (occurrence: US)
  Receive Date: 20190326
  Receipt Date: 20190326
  Transmission Date: 20190418
  Serious: Yes (Hospitalization)
  Sender: FDA-Public Use
  Company Number: US-ABBVIE-19S-163-2713018-00

PATIENT

DRUGS (1)
  1. LUPRON [Suspect]
     Active Substance: LEUPROLIDE ACETATE
     Indication: PRODUCT USED FOR UNKNOWN INDICATION
     Route: 050

REACTIONS (10)
  - Eye discharge [Unknown]
  - Vision blurred [Unknown]
  - Nocturia [Unknown]
  - Inguinal hernia [Unknown]
  - Influenza [Unknown]
  - Abdominal pain [Unknown]
  - Hot flush [Unknown]
  - Anaemia [Unknown]
  - Haematuria [Unknown]
  - Gait disturbance [Unknown]
